FAERS Safety Report 5478473-5 (Version None)
Quarter: 2007Q4

REPORT INFORMATION
  Report Type: 
  Country: None (occurrence: None)
  Receive Date: 20071005
  Receipt Date: 20070925
  Transmission Date: 20080405
  Serious: Yes (Other)
  Sender: FDA-Public Use
  Company Number: NL-ROCHE-521263

PATIENT
  Age: 24 Year
  Sex: Female
  Weight: 68 kg

DRUGS (2)
  1. LARIAM [Suspect]
     Indication: PROPHYLAXIS
     Route: 048
     Dates: start: 20070727
  2. MICROGYNON [Concomitant]
     Route: 048
     Dates: start: 20070701

REACTIONS (3)
  - BRACHIAL PLEXUS INJURY [None]
  - GRAND MAL CONVULSION [None]
  - JOINT DISLOCATION [None]
